FAERS Safety Report 20015410 (Version 1)
Quarter: 2021Q4

REPORT INFORMATION
  Report Type: Spontaneous
  Country: US (occurrence: None)
  Receive Date: 20211031
  Receipt Date: 20211031
  Transmission Date: 20220303
  Serious: Yes (Hospitalization)
  Sender: FDA-Public Use
  Company Number: None

PATIENT
  Age: 54 Year
  Sex: Male
  Weight: 76.5 kg

DRUGS (1)
  1. REGEN-COV [Suspect]
     Active Substance: CASIRIVIMAB\IMDEVIMAB
     Indication: COVID-19
     Dosage: OTHER FREQUENCY : 4 CONSECUTIVE INJ.;?
     Route: 058
     Dates: start: 20211026, end: 20211026

REACTIONS (7)
  - Dizziness [None]
  - Pallor [None]
  - Hyperhidrosis [None]
  - Consciousness fluctuating [None]
  - Heart rate decreased [None]
  - Oxygen saturation decreased [None]
  - Presyncope [None]

NARRATIVE: CASE EVENT DATE: 20211026
